FAERS Safety Report 8582640-1 (Version None)
Quarter: 2012Q3

REPORT INFORMATION
  Report Type: 
  Country: None (occurrence: None)
  Receive Date: 20120809
  Receipt Date: 20120807
  Transmission Date: 20120928
  Serious: Yes (Other)
  Sender: FDA-Public Use
  Company Number: BR-ROCHE-1099113

PATIENT
  Sex: Female
  Weight: 70 kg

DRUGS (5)
  1. ERITREX [Concomitant]
     Route: 042
  2. NUTRICAL [Concomitant]
  3. MABTHERA [Suspect]
     Indication: RHEUMATOID ARTHRITIS
     Route: 042
     Dates: start: 20120719
  4. PROTOS [Concomitant]
  5. PONDERA [Concomitant]

REACTIONS (2)
  - FRACTURE [None]
  - FALL [None]
